FAERS Safety Report 12591505 (Version 1)
Quarter: 2016Q3

REPORT INFORMATION
  Report Type: Spontaneous
  Country: US (occurrence: None)
  Receive Date: 20160725
  Receipt Date: 20160725
  Transmission Date: 20161109
  Serious: Yes (Hospitalization)
  Sender: FDA-Public Use
  Company Number: None

PATIENT
  Age: 80 Year
  Sex: Male
  Weight: 83.9 kg

DRUGS (2)
  1. CASODEX [Suspect]
     Active Substance: BICALUTAMIDE
     Dates: end: 20150317
  2. LEUPROLIDE ACETATE. [Suspect]
     Active Substance: LEUPROLIDE ACETATE
     Dates: end: 20151208

REACTIONS (5)
  - Dysarthria [None]
  - Ischaemic stroke [None]
  - Lumbar spinal stenosis [None]
  - Back pain [None]
  - Muscular weakness [None]

NARRATIVE: CASE EVENT DATE: 20160527
